FAERS Safety Report 9632594 (Version 1)
Quarter: 2013Q4

REPORT INFORMATION
  Report Type: Spontaneous
  Country: US (occurrence: US)
  Receive Date: 20131018
  Receipt Date: 20131018
  Transmission Date: 20140711
  Serious: No
  Sender: FDA-Public Use
  Company Number: US-B.I. PHARMACEUTICALS,INC./RIDGEFIELD-2013-BI-31683BP

PATIENT
  Age: 62 Year
  Sex: Female

DRUGS (2)
  1. MICARDIS [Suspect]
     Indication: HYPERTENSION
     Dosage: 80 MG
     Route: 048
     Dates: start: 2009, end: 2013
  2. MICARDIS [Suspect]
     Dosage: 80 MG
     Route: 048
     Dates: start: 2013

REACTIONS (7)
  - Tension [Not Recovered/Not Resolved]
  - Groin pain [Not Recovered/Not Resolved]
  - Muscle strain [Not Recovered/Not Resolved]
  - Blood urine present [Recovered/Resolved]
  - Muscle strain [Not Recovered/Not Resolved]
  - Muscle strain [Not Recovered/Not Resolved]
  - Blood urine present [Not Recovered/Not Resolved]
